FAERS Safety Report 12223364 (Version 1)
Quarter: 2016Q1

REPORT INFORMATION
  Report Type: Report from Study
  Country: US (occurrence: US)
  Receive Date: 20160330
  Receipt Date: 20160330
  Transmission Date: 20160526
  Serious: Yes (Hospitalization, Other)
  Sender: FDA-Public Use
  Company Number: PHHO2014US018337

PATIENT

DRUGS (2)
  1. MEDI4736 [Suspect]
     Active Substance: DURVALUMAB
     Indication: MALIGNANT MELANOMA
     Dosage: 10 MG/KG, UNK
     Route: 042
     Dates: start: 20140610
  2. GSK1120212 [Suspect]
     Active Substance: TRAMETINIB
     Indication: MALIGNANT MELANOMA
     Dosage: 2 MG, QD
     Route: 065
     Dates: start: 20140513

REACTIONS (2)
  - Transaminases increased [Not Recovered/Not Resolved]
  - Pneumonia [Not Recovered/Not Resolved]

NARRATIVE: CASE EVENT DATE: 20140825
